FAERS Safety Report 17523040 (Version 2)
Quarter: 2020Q1

REPORT INFORMATION
  Report Type: Spontaneous
  Country: PL (occurrence: PL)
  Receive Date: 20200311
  Receipt Date: 20200326
  Transmission Date: 20200409
  Serious: Yes (Other)
  Sender: FDA-Public Use
  Company Number: PL-AUROBINDO-AUR-APL-2020-011575

PATIENT
  Age: 52 Year
  Sex: Female

DRUGS (7)
  1. PERINDOPRIL TABLET [Suspect]
     Active Substance: PERINDOPRIL
     Indication: HYPERTENSION
     Dosage: 10 MILLIGRAM, ONCE A DAY
     Route: 065
  2. IBUPROFEN. [Interacting]
     Active Substance: IBUPROFEN
     Indication: ARTHRALGIA
     Dosage: UNK, 400-1200 MG/DAY
     Route: 065
  3. DICLOFENAC SODIUM. [Interacting]
     Active Substance: DICLOFENAC SODIUM
     Indication: ARTHRALGIA
     Dosage: 100 MILLIGRAM, ONCE A DAY
     Route: 048
  4. ESTROGEN NOS [Concomitant]
     Active Substance: ESTROGENS
     Indication: MOOD ALTERED
  5. ESTROGEN NOS [Concomitant]
     Active Substance: ESTROGENS
     Indication: HOT FLUSH
  6. KETOPROFEN. [Interacting]
     Active Substance: KETOPROFEN
     Indication: ARTHRALGIA
     Dosage: UNK, 50-100MG/DAY
     Route: 065
  7. ESTROGEN NOS [Concomitant]
     Active Substance: ESTROGENS
     Indication: MENOPAUSAL SYMPTOMS
     Dosage: UNK
     Route: 065

REACTIONS (4)
  - Inadequate analgesia [Recovered/Resolved]
  - Blood pressure increased [Recovered/Resolved]
  - Inhibitory drug interaction [Recovered/Resolved]
  - Drug interaction [Recovered/Resolved]

NARRATIVE: CASE EVENT DATE: 2019
